FAERS Safety Report 11506803 (Version 4)
Quarter: 2016Q2

REPORT INFORMATION
  Report Type: Spontaneous
  Country: US (occurrence: US)
  Receive Date: 20150915
  Receipt Date: 20160421
  Transmission Date: 20160815
  Serious: Yes (Hospitalization)
  Sender: FDA-Public Use
  Company Number: US-ASTELLAS-2015US032658

PATIENT
  Sex: Male
  Weight: 164 kg

DRUGS (1)
  1. TARCEVA [Suspect]
     Active Substance: ERLOTINIB HYDROCHLORIDE
     Indication: LUNG NEOPLASM MALIGNANT
     Route: 048
     Dates: start: 20140110

REACTIONS (6)
  - Palmar-plantar erythrodysaesthesia syndrome [Unknown]
  - Dry skin [Not Recovered/Not Resolved]
  - Skin disorder [Unknown]
  - Nail infection [Not Recovered/Not Resolved]
  - Nephrolithiasis [Unknown]
  - Paronychia [Unknown]
